FAERS Safety Report 20202046 (Version 2)
Quarter: 2021Q4

REPORT INFORMATION
  Report Type: Spontaneous
  Country: US (occurrence: US)
  Receive Date: 20211217
  Receipt Date: 20211230
  Transmission Date: 20220303
  Serious: Yes (Other)
  Sender: FDA-Public Use
  Company Number: US-PFIZER INC-2017002381

PATIENT
  Age: 58 Year
  Sex: Female

DRUGS (9)
  1. RELPAX [Suspect]
     Active Substance: ELETRIPTAN HYDROBROMIDE
     Indication: Migraine
     Dosage: 40 MG, AS NEEDED (MAY REPEAT DOSE ONCE IN 2 HOURS)
     Route: 048
  2. RELPAX [Suspect]
     Active Substance: ELETRIPTAN HYDROBROMIDE
     Indication: Back pain
  3. ZONISAMIDE [Concomitant]
     Active Substance: ZONISAMIDE
     Dosage: 500 MG, DAILY [TAKE 1 MORNING AND 4 EVERY EVENING]
  4. ESCITALOPRAM [Concomitant]
     Active Substance: ESCITALOPRAM OXALATE
     Dosage: 10 MG, DAILY
  5. VITAMINS [Concomitant]
     Active Substance: VITAMINS
     Dosage: UNK
  6. CALCIUM [Concomitant]
     Active Substance: CALCIUM
     Dosage: 6 MG
  7. FERROUS SULFATE [Concomitant]
     Active Substance: FERROUS SULFATE
     Dosage: 28 MG
  8. FOLIC ACID [Concomitant]
     Active Substance: FOLIC ACID
     Dosage: 800 UG
  9. B-COMPLEX + VITAMIN C [Concomitant]
     Dosage: UNK

REACTIONS (5)
  - Colon cancer [Unknown]
  - Epilepsy [Unknown]
  - Major depression [Unknown]
  - Fatigue [Unknown]
  - Hyperlipidaemia [Unknown]
